FAERS Safety Report 20225166 (Version 1)
Quarter: 2021Q4

REPORT INFORMATION
  Report Type: Spontaneous
  Country: None (occurrence: GB)
  Receive Date: 20211223
  Receipt Date: 20211223
  Transmission Date: 20220303
  Serious: Yes (Other)
  Sender: FDA-Public Use
  Company Number: GB-Ascend Therapeutics US, LLC-2123360

PATIENT
  Age: 59 Year
  Sex: Female
  Weight: 90 kg

DRUGS (7)
  1. ESTROGEL [Suspect]
     Active Substance: ESTRADIOL
     Indication: Hormone replacement therapy
     Route: 061
     Dates: start: 20210801
  2. ESTROGEL [Suspect]
     Active Substance: ESTRADIOL
  3. ESTRADIOL [Suspect]
     Active Substance: ESTRADIOL
     Route: 061
     Dates: start: 20210801
  4. CYCLOGEST(PROGESTERONE) [Concomitant]
     Route: 065
  5. PROGESTERONE [Concomitant]
     Active Substance: PROGESTERONE
     Route: 065
  6. LATANOPROST [Concomitant]
     Active Substance: LATANOPROST
     Route: 065
  7. TESTOSTERONE [Concomitant]
     Active Substance: TESTOSTERONE
     Route: 065

REACTIONS (2)
  - Dry skin [Not Recovered/Not Resolved]
  - Anxiety [Not Recovered/Not Resolved]

NARRATIVE: CASE EVENT DATE: 20210801
